FAERS Safety Report 7459959-0 (Version None)
Quarter: 2011Q2

REPORT INFORMATION
  Report Type: 
  Country: None (occurrence: None)
  Receive Date: 20110505
  Receipt Date: 20110426
  Transmission Date: 20111010
  Serious: Yes (Death, Hospitalization)
  Sender: FDA-Public Use
  Company Number: JP-GENZYME-THYM-1001603

PATIENT
  Sex: Female
  Weight: 70 kg

DRUGS (9)
  1. CEFTRIAXONE SODIUM [Concomitant]
     Indication: APLASTIC ANAEMIA
     Dosage: UNK
     Dates: start: 20090731, end: 20090803
  2. PLATELETS [Concomitant]
     Indication: APLASTIC ANAEMIA
     Dosage: UNK
     Route: 042
     Dates: start: 20091022, end: 20091205
  3. THYMOGLOBULIN [Suspect]
     Indication: APLASTIC ANAEMIA
     Dosage: 225 MG, QD
     Route: 042
     Dates: start: 20091019, end: 20091022
  4. PREDNISOLONE [Concomitant]
     Indication: APLASTIC ANAEMIA
     Dosage: UNK
     Dates: start: 20090807, end: 20091206
  5. AMLODIPINE BESILATE [Concomitant]
     Indication: HYPERTENSION
     Dosage: UNK
     Dates: start: 20090824, end: 20091206
  6. RED BLOOD CELLS [Concomitant]
     Indication: APLASTIC ANAEMIA
     Dosage: UNK
     Dates: start: 20091026, end: 20091120
  7. ISOSORBIDE DINITRATE [Concomitant]
     Indication: CARDIOVASCULAR EVENT PROPHYLAXIS
     Dosage: UNK
     Dates: start: 20090828, end: 20091206
  8. CYCLOSPORINE [Concomitant]
     Indication: APLASTIC ANAEMIA
     Dosage: UNK
     Dates: start: 20090817, end: 20091206
  9. OMEPRAZOLE [Concomitant]
     Indication: GASTRIC ULCER
     Dosage: UNK
     Dates: start: 20090918, end: 20091206

REACTIONS (3)
  - PANCYTOPENIA [None]
  - PNEUMONIA CYTOMEGALOVIRAL [None]
  - THERAPEUTIC RESPONSE DECREASED [None]
